FAERS Safety Report 9402868 (Version 1)
Quarter: 2013Q3

REPORT INFORMATION
  Report Type: Spontaneous
  Country: JP (occurrence: JP)
  Receive Date: 20130716
  Receipt Date: 20130716
  Transmission Date: 20140515
  Serious: Yes (Other)
  Sender: FDA-Public Use
  Company Number: JP-PFIZER INC-2013208013

PATIENT
  Age: 96 Year
  Sex: Female

DRUGS (5)
  1. LYRICA [Suspect]
     Indication: PAIN
     Dosage: UNK
     Route: 048
  2. TEGRETOL [Concomitant]
     Dosage: 100 MG, DAILY
     Route: 048
  3. DEPAS [Concomitant]
     Dosage: 0.5 MG DAILY
     Route: 048
  4. LOXONIN [Concomitant]
  5. MUCOSTA [Concomitant]
     Route: 048

REACTIONS (5)
  - Dysstasia [Recovering/Resolving]
  - Dysarthria [Recovering/Resolving]
  - Somnolence [Recovering/Resolving]
  - Dizziness [Recovering/Resolving]
  - Pain [Unknown]
